FAERS Safety Report 8411860-1 (Version None)
Quarter: 2012Q2

REPORT INFORMATION
  Report Type: 
  Country: None (occurrence: None)
  Receive Date: 20120605
  Receipt Date: 20120515
  Transmission Date: 20120825
  Serious: No
  Sender: FDA-Public Use
  Company Number: US-AMGEN-USASP2012030591

PATIENT
  Age: 39 Year
  Sex: Female

DRUGS (2)
  1. ENBREL [Suspect]
     Indication: RHEUMATOID ARTHRITIS
     Dosage: 50 MG, QWK
     Dates: start: 20110331
  2. TREXALL [Concomitant]
     Dosage: 1 MG, UNK
     Dates: start: 20120328

REACTIONS (4)
  - ERYTHEMA [None]
  - SKIN INDURATION [None]
  - BLISTER [None]
  - PRURITUS [None]
